FAERS Safety Report 25115960 (Version 1)
Quarter: 2025Q1

REPORT INFORMATION
  Report Type: Report from Study
  Country: US (occurrence: US)
  Receive Date: 20250325
  Receipt Date: 20250325
  Transmission Date: 20250408
  Serious: Yes (Hospitalization, Other)
  Sender: JAZZ
  Company Number: US-JAZZ PHARMACEUTICALS-2025-US-007645

PATIENT
  Sex: Male
  Weight: 98 kg

DRUGS (1)
  1. EPIDIOLEX [Suspect]
     Active Substance: CANNABIDIOL
     Indication: Product used for unknown indication
     Dosage: 3 MILLILITER, BID
     Route: 048

REACTIONS (4)
  - Seizure [Not Recovered/Not Resolved]
  - Red blood cell count abnormal [Unknown]
  - Platelet count abnormal [Unknown]
  - Drug ineffective [Unknown]
